FAERS Safety Report 7985982-3 (Version None)
Quarter: 2011Q4

REPORT INFORMATION
  Report Type: 
  Country: None (occurrence: None)
  Receive Date: 20111216
  Receipt Date: 20111214
  Transmission Date: 20120403
  Serious: Yes (Hospitalization, Other)
  Sender: FDA-Public Use
  Company Number: US-MERCK-1108USA01575

PATIENT
  Age: 63 Year
  Sex: Male
  Weight: 84 kg

DRUGS (7)
  1. FINASTERIDE [Concomitant]
     Route: 048
     Dates: start: 20010521
  2. ALENDRONATE SODIUM [Suspect]
     Route: 048
     Dates: start: 20060509, end: 20090301
  3. FOSAMAX [Suspect]
     Indication: PROSTATE CANCER
     Route: 048
     Dates: start: 20010521, end: 20100101
  4. FOSAMAX [Suspect]
     Indication: OSTEOPOROSIS
     Route: 048
     Dates: start: 20010521, end: 20100101
  5. ALENDRONATE SODIUM [Suspect]
     Indication: PROSTATE CANCER
     Route: 048
     Dates: start: 20010521, end: 20060509
  6. ALENDRONATE SODIUM [Suspect]
     Indication: OSTEOPOROSIS
     Route: 048
     Dates: start: 20010521, end: 20060509
  7. ALENDRONATE SODIUM [Suspect]
     Route: 048
     Dates: start: 20060509, end: 20090301

REACTIONS (33)
  - ANXIETY [None]
  - GOUT [None]
  - ARTHROPATHY [None]
  - DEPRESSION [None]
  - COGNITIVE DISORDER [None]
  - LIPOMA [None]
  - OFF LABEL USE [None]
  - FOOT FRACTURE [None]
  - FEMUR FRACTURE [None]
  - DEMENTIA [None]
  - FALL [None]
  - MULTIPLE FRACTURES [None]
  - LIMB ASYMMETRY [None]
  - PRESBYOPIA [None]
  - CHEST DISCOMFORT [None]
  - METASTASES TO BONE [None]
  - HOT FLUSH [None]
  - MEMORY IMPAIRMENT [None]
  - HYPERGLYCAEMIA [None]
  - ARTHRALGIA [None]
  - HYPERTENSION [None]
  - RHINITIS ALLERGIC [None]
  - RADICULOPATHY [None]
  - BENIGN PROSTATIC HYPERPLASIA [None]
  - BACK PAIN [None]
  - ROTATOR CUFF SYNDROME [None]
  - PROSTATIC SPECIFIC ANTIGEN INCREASED [None]
  - NOCTURIA [None]
  - MYOPIA [None]
  - IMPAIRED HEALING [None]
  - BLOOD CHOLESTEROL [None]
  - CARDIAC MURMUR [None]
  - ACROCHORDON [None]
